FAERS Safety Report 6055993-6 (Version None)
Quarter: 2009Q1

REPORT INFORMATION
  Report Type: 
  Country: None (occurrence: None)
  Receive Date: 20090126
  Receipt Date: 20090116
  Transmission Date: 20090719
  Serious: Yes (Life-Threatening, Hospitalization, Other)
  Sender: FDA-Public Use
  Company Number: 100#03#2009-00138

PATIENT
  Age: 64 Year
  Sex: Male

DRUGS (7)
  1. CARVEDILOL [Suspect]
     Indication: HYPERTENSION
     Dosage: 6.25 MG
     Dates: start: 20050101
  2. INHIBACE (2.5 MILLIGRAM) (CILAZAPRIL) [Suspect]
     Indication: HYPERTENSION
     Dosage: 1 TO 5 MG ORAL
     Route: 048
     Dates: start: 20050101
  3. ALCOHOL (ETHANOL) [Suspect]
     Indication: DRUG USE FOR UNKNOWN INDICATION
  4. CARDIN (SIMVASTATIN) [Concomitant]
  5. BETOPTIC [Concomitant]
  6. VITREOLENT (POTASSIUM IODIDE) [Concomitant]
  7. ACETYLSALICYLIC ACID SRT [Concomitant]

REACTIONS (6)
  - ALCOHOL INTERACTION [None]
  - FALL [None]
  - HEAD INJURY [None]
  - HYPOTONIA [None]
  - LOSS OF CONSCIOUSNESS [None]
  - SYNCOPE [None]
